FAERS Safety Report 16917652 (Version 1)
Quarter: 2019Q4

REPORT INFORMATION
  Report Type: Spontaneous
  Country: US (occurrence: US)
  Receive Date: 20191015
  Receipt Date: 20191015
  Transmission Date: 20200122
  Serious: No
  Sender: FDA-Public Use
  Company Number: US-BEH-2019107967

PATIENT
  Sex: Male

DRUGS (1)
  1. CORIFACT [Suspect]
     Active Substance: FACTOR XIII CONCENTRATE (HUMAN)
     Dosage: 4212 INTERNATIONAL UNIT, QMT
     Route: 042
     Dates: start: 20190510

REACTIONS (1)
  - General physical health deterioration [Unknown]
